FAERS Safety Report 25574481 (Version 5)
Quarter: 2025Q4

REPORT INFORMATION
  Report Type: Report from Study
  Country: US (occurrence: US)
  Receive Date: 20250717
  Receipt Date: 20251124
  Transmission Date: 20260117
  Serious: No
  Sender: AVERITAS
  Company Number: US-GRUNENTHAL-2025-110608

PATIENT
  Age: 57 Year
  Sex: Female

DRUGS (2)
  1. QUTENZA [Suspect]
     Active Substance: CAPSAICIN
     Indication: Diabetic neuropathy
     Dosage: UNK UNK, ONCE
     Route: 061
     Dates: start: 20250703, end: 20250703
  2. QUTENZA [Suspect]
     Active Substance: CAPSAICIN
     Dosage: UNK UNK, ONCE
     Route: 061
     Dates: start: 20251003, end: 20251003

REACTIONS (7)
  - Therapeutic product effect decreased [Unknown]
  - Burning sensation [Recovered/Resolved]
  - Application site warmth [Unknown]
  - Pain [Unknown]
  - Discomfort [Unknown]
  - Arthralgia [Unknown]
  - Pain [Unknown]

NARRATIVE: CASE EVENT DATE: 20250101
